FAERS Safety Report 9776972 (Version 1)
Quarter: 2013Q4

REPORT INFORMATION
  Report Type: Spontaneous
  Country: US (occurrence: US)
  Receive Date: 20131221
  Receipt Date: 20131221
  Transmission Date: 20140711
  Serious: No
  Sender: FDA-Public Use
  Company Number: US-B.I. PHARMACEUTICALS,INC./RIDGEFIELD-2013-BI-41353BP

PATIENT
  Age: 81 Year
  Sex: Female
  Weight: 63 kg

DRUGS (3)
  1. SPIRIVA [Suspect]
     Indication: CHRONIC OBSTRUCTIVE PULMONARY DISEASE
     Dosage: 18 MCG
     Route: 055
     Dates: start: 2011, end: 201310
  2. SPIRIVA [Suspect]
     Indication: ASTHMA
     Dosage: 18 MCG
     Route: 055
     Dates: start: 201310
  3. SPIRIVA [Suspect]
     Dosage: 18 MCG
     Route: 048
     Dates: start: 201310

REACTIONS (5)
  - Asthma [Not Recovered/Not Resolved]
  - Epistaxis [Not Recovered/Not Resolved]
  - Dyspnoea [Recovered/Resolved]
  - Incorrect route of drug administration [Recovered/Resolved]
  - Off label use [Unknown]
